FAERS Safety Report 23680245 (Version 3)
Quarter: 2024Q3

REPORT INFORMATION
  Report Type: Report from Study
  Country: US (occurrence: US)
  Receive Date: 20240327
  Receipt Date: 20240710
  Transmission Date: 20241016
  Serious: Yes (Hospitalization)
  Sender: ABBVIE
  Company Number: US-ABBVIE-5694918

PATIENT
  Sex: Male

DRUGS (4)
  1. IMBRUVICA [Suspect]
     Active Substance: IBRUTINIB
     Indication: Chronic lymphocytic leukaemia
     Dosage: FORM STRENGTH: 140 MILLIGRAM
     Route: 048
     Dates: start: 2019
  2. IMBRUVICA [Suspect]
     Active Substance: IBRUTINIB
     Indication: Chronic lymphocytic leukaemia
     Dosage: FORM STRENGTH: 140 MILLIGRAM
     Route: 048
     Dates: start: 202307
  3. CIPROFLOXACIN [Suspect]
     Active Substance: CIPROFLOXACIN
     Indication: Urinary tract infection
     Route: 065
  4. BACTRIM [Suspect]
     Active Substance: SULFAMETHOXAZOLE\TRIMETHOPRIM
     Indication: Urinary tract infection
     Route: 065

REACTIONS (16)
  - Adverse reaction [Unknown]
  - Urinary tract infection [Recovered/Resolved]
  - Cardiac disorder [Recovered/Resolved]
  - Muscle rupture [Unknown]
  - Upper respiratory tract infection [Unknown]
  - Headache [Unknown]
  - Choking sensation [Unknown]
  - Lung disorder [Unknown]
  - Dyspnoea [Unknown]
  - Cardiac disorder [Unknown]
  - Dysuria [Recovered/Resolved]
  - Choking sensation [Recovered/Resolved]
  - Dysuria [Recovered/Resolved]
  - Lung disorder [Recovered/Resolved]
  - Muscle rupture [Unknown]
  - Drug hypersensitivity [Unknown]

NARRATIVE: CASE EVENT DATE: 20240101
